FAERS Safety Report 7828355-6 (Version None)
Quarter: 2011Q4

REPORT INFORMATION
  Report Type: 
  Country: None (occurrence: None)
  Receive Date: 20111020
  Receipt Date: 20111012
  Transmission Date: 20120403
  Serious: Yes (Hospitalization, Other)
  Sender: FDA-Public Use
  Company Number: US-VERTEX PHARMACEUTICALS INC.-AE-2011-001552

PATIENT
  Sex: Male
  Weight: 70.37 kg

DRUGS (7)
  1. PEGASYS [Concomitant]
     Indication: HEPATITIS C
     Route: 058
     Dates: start: 20110806
  2. MULTI-VITAMIN [Concomitant]
     Route: 048
  3. RIBAVIRIN [Concomitant]
     Indication: HEPATITIS C
     Route: 048
     Dates: start: 20110806
  4. VITAMIN D [Concomitant]
     Route: 048
  5. ACETAMINOPHEN [Concomitant]
     Route: 048
  6. PREPARATION H [Concomitant]
  7. INCIVEK [Suspect]
     Indication: HEPATITIS C
     Route: 048
     Dates: start: 20110806

REACTIONS (13)
  - RASH [None]
  - HAEMORRHOIDS [None]
  - PRURITUS [None]
  - SWELLING FACE [None]
  - EYE PRURITUS [None]
  - RESPIRATORY FAILURE [None]
  - EYE SWELLING [None]
  - ANAEMIA [None]
  - PAIN IN EXTREMITY [None]
  - OCULAR HYPERAEMIA [None]
  - PYREXIA [None]
  - FATIGUE [None]
  - DYSGEUSIA [None]
